FAERS Safety Report 5083247-3 (Version None)
Quarter: 2006Q3

REPORT INFORMATION
  Report Type: 
  Country: None (occurrence: None)
  Receive Date: 20060816
  Receipt Date: 20060816
  Transmission Date: 20061208
  Serious: Yes (Life-Threatening, Other)
  Sender: FDA-Public Use
  Company Number: None

PATIENT
  Age: 81 Year
  Sex: Female
  Weight: 72.5755 kg

DRUGS (6)
  1. TETRACYCLINE [Suspect]
     Indication: GASTROINTESTINAL ULCER
     Dosage: 500 MG FOUR TIMES A DAY
     Dates: start: 20060728, end: 20060811
  2. FLAGYL [Suspect]
  3. PRILOSEC [Concomitant]
  4. BENACAR HCT [Concomitant]
  5. SYNTHROID [Concomitant]
  6. LUCENTIS [Concomitant]

REACTIONS (4)
  - CARDIAC FAILURE CONGESTIVE [None]
  - ERYTHEMA [None]
  - FAECES DISCOLOURED [None]
  - RESPIRATORY TRACT CONGESTION [None]
